FAERS Safety Report 18461543 (Version 3)
Quarter: 2021Q1

REPORT INFORMATION
  Report Type: Report from Study
  Country: US (occurrence: US)
  Receive Date: 20201104
  Receipt Date: 20210222
  Transmission Date: 20210419
  Serious: Yes (Other)
  Sender: FDA-Public Use
  Company Number: US-SA-2019SA147119

PATIENT
  Age: 57 Year
  Sex: Female

DRUGS (2)
  1. ALEMTUZUMAB [Suspect]
     Active Substance: ALEMTUZUMAB
     Indication: MULTIPLE SCLEROSIS
     Dosage: 12 MG, QD
     Route: 041
     Dates: start: 20190507, end: 20190509
  2. ALEMTUZUMAB [Suspect]
     Active Substance: ALEMTUZUMAB
     Dosage: 12 MG, QD
     Route: 041
     Dates: start: 20180326, end: 20180330

REACTIONS (16)
  - Insomnia [Not Recovered/Not Resolved]
  - Migraine [Unknown]
  - Fatigue [Not Recovered/Not Resolved]
  - Yawning [Unknown]
  - Cough [Unknown]
  - Fall [Unknown]
  - Chronic kidney disease [Unknown]
  - Laboratory test abnormal [Unknown]
  - Blood urine present [Recovered/Resolved]
  - Back pain [Not Recovered/Not Resolved]
  - Aphasia [Unknown]
  - Urinary tract infection [Unknown]
  - Kidney infection [Recovered/Resolved]
  - Blood creatinine increased [Recovered/Resolved]
  - Urinary retention [Unknown]
  - Anxiety [Not Recovered/Not Resolved]

NARRATIVE: CASE EVENT DATE: 2019
